FAERS Safety Report 23188534 (Version 10)
Quarter: 2024Q1

REPORT INFORMATION
  Report Type: Spontaneous
  Country: ES (occurrence: ES)
  Receive Date: 20231115
  Receipt Date: 20240329
  Transmission Date: 20240410
  Serious: Yes (Hospitalization, Other)
  Sender: FDA-Public Use
  Company Number: ES-BIOVITRUM-2023-ES-018025

PATIENT

DRUGS (4)
  1. PEGCETACOPLAN [Suspect]
     Active Substance: PEGCETACOPLAN
     Indication: Paroxysmal nocturnal haemoglobinuria
     Dosage: THE HEMATOLOGIST WILL MANAGE THE HEMOLYTIC CRISIS WITH 3 DOSES ON CONSECUTIVE DAYS OF PEGCETACOPLAN,
     Route: 058
  2. PEGCETACOPLAN [Suspect]
     Active Substance: PEGCETACOPLAN
     Dosage: EVERY 3 DAYS
     Route: 058
  3. LINEZOLID [Suspect]
     Active Substance: LINEZOLID
     Indication: Staphylococcal infection
     Dosage: UNK
     Dates: end: 20231219
  4. LINEZOLID [Suspect]
     Active Substance: LINEZOLID
     Dates: end: 20231219

REACTIONS (9)
  - Cytopenia [Recovered/Resolved]
  - Haemolysis [Recovered/Resolved]
  - Ear discomfort [Recovered/Resolved]
  - Oropharyngeal discomfort [Recovered/Resolved]
  - Erythema [Recovered/Resolved]
  - Staphylococcal infection [Recovered/Resolved]
  - Off label use [Unknown]
  - Fatigue [Recovered/Resolved]
  - Respiratory tract infection viral [Recovered/Resolved]

NARRATIVE: CASE EVENT DATE: 20230101
